FAERS Safety Report 5350704-1 (Version None)
Quarter: 2007Q2

REPORT INFORMATION
  Report Type: 
  Country: None (occurrence: None)
  Receive Date: 20070606
  Receipt Date: 20070606
  Transmission Date: 20071010
  Serious: Yes (Other)
  Sender: FDA-Public Use
  Company Number: None

PATIENT
  Sex: Female
  Weight: 75.7507 kg

DRUGS (1)
  1. CREST PRO-HEALTH/CLEAN N/A PROCTOR + GAMBLE, CINCINNATI, OH [Suspect]
     Indication: DENTAL DISORDER PROPHYLAXIS
     Dosage: SHORT TOOTHBRUSH COVERAGE USED ONCE ONLY DENTAL
     Route: 004
     Dates: start: 20070529, end: 20070529

REACTIONS (2)
  - PHARMACEUTICAL PRODUCT COMPLAINT [None]
  - STOMATITIS [None]
